FAERS Safety Report 9868146 (Version 2)
Quarter: 2014Q1

REPORT INFORMATION
  Report Type: Report from Study
  Country: US (occurrence: US)
  Receive Date: 20140204
  Receipt Date: 20140228
  Transmission Date: 20141002
  Serious: Yes (Other)
  Sender: FDA-Public Use
  Company Number: PHEH2014US002402

PATIENT
  Age: 47 Year
  Sex: Female

DRUGS (1)
  1. GILENYA [Suspect]
     Indication: MULTIPLE SCLEROSIS
     Dosage: 0.5 MG, DAILY
     Route: 048
     Dates: start: 20131122, end: 201401

REACTIONS (9)
  - Hemiplegia [Unknown]
  - Subcutaneous abscess [Recovering/Resolving]
  - Neuropathy peripheral [Unknown]
  - Feeling of body temperature change [Unknown]
  - Discomfort [Unknown]
  - Paraesthesia [Unknown]
  - Alopecia [Recovering/Resolving]
  - White blood cell count decreased [Unknown]
  - Asthenia [Recovering/Resolving]
